FAERS Safety Report 21118736 (Version 1)
Quarter: 2022Q3

REPORT INFORMATION
  Report Type: Spontaneous
  Country: NL (occurrence: NL)
  Receive Date: 20220722
  Receipt Date: 20220722
  Transmission Date: 20221026
  Serious: Yes (Other)
  Sender: FDA-Public Use
  Company Number: None

PATIENT
  Sex: Female
  Weight: 63 kg

DRUGS (5)
  1. DOXORUBICIN [Suspect]
     Active Substance: DOXORUBICIN
     Indication: Chemotherapy
     Dosage: 100 MG 1X PER 2 WEEKS IV IN COMBINATION WITH CYCLOPHOSPHAMIDE,   DOXORUBICIN FOR INJECTION/INFUSION
     Route: 042
     Dates: start: 202112
  2. CYCLOPHOSPHAMIDE [Suspect]
     Active Substance: CYCLOPHOSPHAMIDE
     Indication: Chemotherapy
     Dosage: 1000 MG INTRAVENOUSLY ONCE EVERY 2 WEEKS, CYCLOPHOSPHAMIDE FOR INJECTION/INFUSION NVZA, DURATION : 2
     Route: 042
     Dates: start: 202112, end: 20220203
  3. GRANISETRON SANDOZ [Concomitant]
     Indication: Product used for unknown indication
     Dosage: STRENGTH: 2 MG, NON-CURRENT DRUG, THERAPY START DATE AND END DATE : ASKU
  4. DEXAMETHASON TEVA [Concomitant]
     Indication: Product used for unknown indication
     Dosage: STRENGTH: 4 MG (MILLIGRAM), THERAPY START DATE AND END DATE : ASKU
  5. EMEND [Concomitant]
     Active Substance: APREPITANT
     Indication: Product used for unknown indication
     Dosage: STRENGTH: 125+80MG (COMBI PACK), 1X125MG/2X80MG, THERAPY START DATE AND END DATE : ASKU

REACTIONS (1)
  - Deafness neurosensory [Not Recovered/Not Resolved]
